FAERS Safety Report 7827644-9 (Version None)
Quarter: 2011Q4

REPORT INFORMATION
  Report Type: 
  Country: None (occurrence: None)
  Receive Date: 20111020
  Receipt Date: 20111012
  Transmission Date: 20120403
  Serious: Yes (Other)
  Sender: FDA-Public Use
  Company Number: PHEH2011US06747

PATIENT
  Sex: Female

DRUGS (3)
  1. RECLAST [Suspect]
     Dosage: UNK UKN, UNK
     Route: 042
  2. VITAMINS NOS [Concomitant]
     Dosage: UNK UKN, UNK
  3. METHOTREXATE [Concomitant]
     Dosage: UNK UKN, UNK

REACTIONS (3)
  - MUSCULOSKELETAL DISCOMFORT [None]
  - CONFUSIONAL STATE [None]
  - ARTHROPATHY [None]
